FAERS Safety Report 23450615 (Version 1)
Quarter: 2024Q1

REPORT INFORMATION
  Report Type: Spontaneous
  Country: US (occurrence: US)
  Receive Date: 20240129
  Receipt Date: 20240129
  Transmission Date: 20240409
  Serious: Yes (Other)
  Sender: FDA-Public Use
  Company Number: US-MACLEODS PHARMACEUTICALS US LTD-MAC2024045486

PATIENT

DRUGS (2)
  1. ESCITALOPRAM [Suspect]
     Active Substance: ESCITALOPRAM OXALATE
     Indication: Depression
     Dosage: UNK
     Route: 065
  2. AMITRIPTYLINE [Suspect]
     Active Substance: AMITRIPTYLINE
     Indication: Depression
     Dosage: UNK
     Route: 065

REACTIONS (1)
  - Bipolar disorder [Recovering/Resolving]
